FAERS Safety Report 7809278-5 (Version None)
Quarter: 2011Q4

REPORT INFORMATION
  Report Type: 
  Country: None (occurrence: None)
  Receive Date: 20111012
  Receipt Date: 20110930
  Transmission Date: 20120403
  Serious: Yes (Other)
  Sender: FDA-Public Use
  Company Number: US-SANOFI-AVENTIS-2011SA065846

PATIENT

DRUGS (2)
  1. DOCETAXEL [Suspect]
     Indication: OVARIAN CANCER RECURRENT
     Dosage: ON DAY 1 AND 8 OF 21 DAYS CYCLE; TWICE IN 21 DAYS
     Route: 065
  2. BEVACIZUMAB [Suspect]
     Indication: OVARIAN CANCER RECURRENT
     Dosage: ON DAY 1 OF 21 DAY CYCLE
     Route: 065

REACTIONS (10)
  - GASTROINTESTINAL PERFORATION [None]
  - DEEP VEIN THROMBOSIS [None]
  - FATIGUE [None]
  - INFECTION [None]
  - UROGENITAL FISTULA [None]
  - DECREASED APPETITE [None]
  - RASH [None]
  - NEUROPATHY PERIPHERAL [None]
  - LEUKOPENIA [None]
  - NEUTROPENIA [None]
